FAERS Safety Report 19889417 (Version 1)
Quarter: 2021Q3

REPORT INFORMATION
  Report Type: Spontaneous
  Country: US (occurrence: US)
  Receive Date: 20210927
  Receipt Date: 20210927
  Transmission Date: 20211014
  Serious: Yes (Hospitalization, Other)
  Sender: FDA-Public Use
  Company Number: US-ASTELLAS-2021US025961

PATIENT
  Sex: Male

DRUGS (1)
  1. PADCEV [Suspect]
     Active Substance: ENFORTUMAB VEDOTIN-EJFV
     Indication: PRODUCT USED FOR UNKNOWN INDICATION
     Dosage: 3?4 DOSES, UNKNOWN FREQ.
     Route: 065

REACTIONS (3)
  - Administration site extravasation [Recovering/Resolving]
  - Acute kidney injury [Recovering/Resolving]
  - Administration site reaction [Recovering/Resolving]
